FAERS Safety Report 12645190 (Version 3)
Quarter: 2016Q4

REPORT INFORMATION
  Report Type: Spontaneous
  Country: TN (occurrence: TN)
  Receive Date: 20160811
  Receipt Date: 20161028
  Transmission Date: 20170207
  Serious: Yes (Death)
  Sender: FDA-Public Use
  Company Number: TN-PFIZER INC-2016377415

PATIENT
  Age: 50 Year
  Sex: Male

DRUGS (12)
  1. DOXORUBICIN HCL [Suspect]
     Active Substance: DOXORUBICIN HYDROCHLORIDE
     Indication: AUTOIMMUNE HAEMOLYTIC ANAEMIA
     Dosage: 25 MG/M2, CYCLIC, (4 CYCLE)
  2. BLEOMYCIN [Suspect]
     Active Substance: BLEOMYCIN SULFATE
     Indication: AUTOIMMUNE HAEMOLYTIC ANAEMIA
     Dosage: 15 MG, CYCLIC, (4 CYCLE)
  3. DACARBAZINE. [Suspect]
     Active Substance: DACARBAZINE
     Indication: AUTOIMMUNE HAEMOLYTIC ANAEMIA
     Dosage: 375 MG/M2, CYCLIC, (4 CYCLE)
  4. ETOPOSIDE. [Concomitant]
     Active Substance: ETOPOSIDE
     Indication: HODGKIN^S DISEASE
     Dosage: 100 MG/M2, CYCLIC, (DAY 1 AND DAY 8)
  5. VINCRISTINE [Concomitant]
     Active Substance: VINCRISTINE
     Indication: HODGKIN^S DISEASE
     Dosage: 1.4 MG/M2, CYCLIC, (DAY 1 AND DAY 8)
  6. VINBLASTINE [Suspect]
     Active Substance: VINBLASTINE
     Indication: AUTOIMMUNE HAEMOLYTIC ANAEMIA
     Dosage: 10 MG, CYCLIC, (4 CYCLE)
  7. PREDNISONE. [Concomitant]
     Active Substance: PREDNISONE
     Indication: HODGKIN^S DISEASE
     Dosage: 40 MG/M2, CYCLIC, (DAY 1 AND DAY 8)
  8. PROCARBAZINE [Concomitant]
     Active Substance: PROCARBAZINE
     Indication: HODGKIN^S DISEASE
     Dosage: 100 MG, CYCLIC, (DAY 1 AND DAY 8)
  9. DOXORUBICIN HCL [Suspect]
     Active Substance: DOXORUBICIN HYDROCHLORIDE
     Indication: HODGKIN^S DISEASE
     Dosage: 35 MG/M2, CYCLIC, (DAY 1 AND DAY 8)
  10. BLEOMYCIN [Suspect]
     Active Substance: BLEOMYCIN SULFATE
     Indication: HODGKIN^S DISEASE
     Dosage: 10 MG/M2, CYCLIC, (DAY 1 AND DAY 8)
  11. PREDNISONE. [Concomitant]
     Active Substance: PREDNISONE
     Indication: AUTOIMMUNE HAEMOLYTIC ANAEMIA
     Dosage: 1 MG/KG, UNK
  12. CYCLOPHOSPHAMIDE. [Concomitant]
     Active Substance: CYCLOPHOSPHAMIDE
     Indication: HODGKIN^S DISEASE
     Dosage: 1200 MG/M2, CYCLIC, (DAY 1 AND DAY 8)

REACTIONS (1)
  - Sepsis [Fatal]
